FAERS Safety Report 16815246 (Version 6)
Quarter: 2019Q4

REPORT INFORMATION
  Report Type: Report from Study
  Country: PL (occurrence: PL)
  Receive Date: 20190917
  Receipt Date: 20191216
  Transmission Date: 20200122
  Serious: Yes (Hospitalization)
  Sender: FDA-Public Use
  Company Number: PL-JNJFOC-20190904788

PATIENT
  Age: 38 Year
  Sex: Male
  Weight: 55.3 kg

DRUGS (6)
  1. DORETA [Concomitant]
     Active Substance: ACETAMINOPHEN\TRAMADOL HYDROCHLORIDE
     Indication: SCIATICA
     Route: 048
     Dates: start: 20190410
  2. MESALAMINE. [Concomitant]
     Active Substance: MESALAMINE
     Indication: CROHN^S DISEASE
     Route: 048
     Dates: start: 20170612
  3. MELOXICAMUM [Concomitant]
     Indication: SCIATICA
     Route: 048
     Dates: start: 20190812
  4. GUSELKUMAB [Suspect]
     Active Substance: GUSELKUMAB
     Indication: CROHN^S DISEASE
     Route: 042
     Dates: start: 20190327
  5. GUSELKUMAB [Suspect]
     Active Substance: GUSELKUMAB
     Route: 058
  6. FERROUS SULFATE. [Concomitant]
     Active Substance: FERROUS SULFATE
     Indication: IRON DEFICIENCY ANAEMIA
     Route: 048
     Dates: start: 20190812

REACTIONS (1)
  - Pelvic abscess [Recovered/Resolved]

NARRATIVE: CASE EVENT DATE: 20190902
